FAERS Safety Report 20335121 (Version 1)
Quarter: 2022Q1

REPORT INFORMATION
  Report Type: Spontaneous
  Country: FR (occurrence: FR)
  Receive Date: 20220114
  Receipt Date: 20220114
  Transmission Date: 20220424
  Serious: Yes (Hospitalization)
  Sender: FDA-Public Use
  Company Number: None

PATIENT
  Age: 1 Day
  Sex: Female
  Weight: 1 kg

DRUGS (3)
  1. DOXORUBICIN HYDROCHLORIDE [Suspect]
     Active Substance: DOXORUBICIN HYDROCHLORIDE
     Indication: Intraductal proliferative breast lesion
     Dosage: 4 CURES IN TOTAL
     Route: 064
  2. PACLITAXEL [Suspect]
     Active Substance: PACLITAXEL
     Indication: Intraductal proliferative breast lesion
     Dosage: 4 CURES IN TOTAL
     Route: 064
  3. PACLITAXEL [Suspect]
     Active Substance: PACLITAXEL
     Dosage: LAST CURE
     Route: 064
     Dates: start: 20211209, end: 20211209

REACTIONS (3)
  - Foetal growth restriction [Not Recovered/Not Resolved]
  - Foetal malnutrition [Not Recovered/Not Resolved]
  - Maternal exposure during pregnancy [Not Recovered/Not Resolved]

NARRATIVE: CASE EVENT DATE: 20211201
